FAERS Safety Report 13924923 (Version 4)
Quarter: 2017Q4

REPORT INFORMATION
  Report Type: Report from Study
  Country: None (occurrence: US)
  Receive Date: 20170831
  Receipt Date: 20171207
  Transmission Date: 20180320
  Serious: Yes (Hospitalization, Other)
  Sender: FDA-Public Use
  Company Number: US-ABBVIE-17K-163-2087602-00

PATIENT
  Sex: Female

DRUGS (1)
  1. HUMIRA [Suspect]
     Active Substance: ADALIMUMAB
     Indication: HIDRADENITIS
     Route: 058
     Dates: end: 20171118

REACTIONS (9)
  - Cyst [Recovering/Resolving]
  - Skin graft [Unknown]
  - Hidradenitis [Unknown]
  - Transfusion [Unknown]
  - Drug ineffective [Unknown]
  - Infection [Unknown]
  - Gait inability [Unknown]
  - Blood iron decreased [Unknown]
  - Impaired healing [Unknown]

NARRATIVE: CASE EVENT DATE: 2017
